FAERS Safety Report 20942737 (Version 5)
Quarter: 2023Q1

REPORT INFORMATION
  Report Type: Report from Study
  Country: CA (occurrence: CA)
  Receive Date: 20220610
  Receipt Date: 20230224
  Transmission Date: 20230417
  Serious: Yes (Hospitalization, Other)
  Sender: FDA-Public Use
  Company Number: CA-BAUSCH-BL-2022-014219

PATIENT
  Age: 67 Year
  Sex: Female

DRUGS (39)
  1. DEXAMETHASONE [Suspect]
     Active Substance: DEXAMETHASONE
     Indication: Product used for unknown indication
     Dosage: NOT SPECIFIED.
     Route: 065
  2. COVID-19 VACCINE NOS [Suspect]
     Active Substance: COVID-19 VACCINE NOS
     Indication: COVID-19 immunisation
     Dosage: TOTAL
     Route: 030
  3. COVID-19 VACCINE NOS [Suspect]
     Active Substance: COVID-19 VACCINE NOS
     Dosage: TOTAL
     Route: 030
  4. GLICLAZIDE [Suspect]
     Active Substance: GLICLAZIDE
     Indication: Blood glucose increased
     Route: 065
  5. GLICLAZIDE [Suspect]
     Active Substance: GLICLAZIDE
     Route: 065
  6. GLICLAZIDE [Suspect]
     Active Substance: GLICLAZIDE
     Route: 065
  7. IXAZOMIB [Suspect]
     Active Substance: IXAZOMIB
     Indication: Plasma cell myeloma
     Route: 065
  8. IXAZOMIB [Suspect]
     Active Substance: IXAZOMIB
     Indication: Product used for unknown indication
     Route: 048
  9. IXAZOMIB [Suspect]
     Active Substance: IXAZOMIB
     Route: 048
  10. IXAZOMIB [Suspect]
     Active Substance: IXAZOMIB
     Route: 065
  11. PIOGLITAZONE HYDROCHLORIDE [Suspect]
     Active Substance: PIOGLITAZONE HYDROCHLORIDE
     Indication: Diabetes mellitus
     Route: 048
  12. PIOGLITAZONE HYDROCHLORIDE [Suspect]
     Active Substance: PIOGLITAZONE HYDROCHLORIDE
     Indication: Product used for unknown indication
  13. ONDANSETRON [Suspect]
     Active Substance: ONDANSETRON
     Indication: Premedication
     Dosage: NOT SPECIFIED
     Route: 065
  14. ONDANSETRON HYDROCHLORIDE [Suspect]
     Active Substance: ONDANSETRON HYDROCHLORIDE
     Indication: Product used for unknown indication
     Route: 065
  15. VAXZEVRIA [Suspect]
     Active Substance: AZD-1222
     Indication: Product used for unknown indication
     Dosage: VAXZEVRIA VIAL CONTAINS 10 DOSES OF 0.5ML
     Route: 030
  16. ASPIRIN [Concomitant]
     Active Substance: ASPIRIN
     Indication: Product used for unknown indication
     Route: 048
  17. ASPIRIN [Concomitant]
     Active Substance: ASPIRIN
     Route: 065
  18. ACYCLOVIR [Concomitant]
     Active Substance: ACYCLOVIR
     Indication: Product used for unknown indication
     Route: 048
  19. AMLODIPINE [Concomitant]
     Active Substance: AMLODIPINE BESYLATE
     Indication: Product used for unknown indication
     Route: 048
  20. ATENOLOL [Concomitant]
     Active Substance: ATENOLOL
     Indication: Product used for unknown indication
     Route: 048
  21. ATENOLOL [Concomitant]
     Active Substance: ATENOLOL
  22. BACLOFEN [Concomitant]
     Active Substance: BACLOFEN
     Indication: Product used for unknown indication
     Dosage: NOT SPECIFIED
     Route: 048
  23. DIETARY SUPPLEMENT [Concomitant]
     Active Substance: DIETARY SUPPLEMENT
     Indication: Product used for unknown indication
     Route: 048
  24. CYCLOPHOSPHAMIDE [Concomitant]
     Active Substance: CYCLOPHOSPHAMIDE
     Indication: Product used for unknown indication
     Dosage: NOT SPECIFIED
     Route: 065
  25. CYCLOPHOSPHAMIDE [Concomitant]
     Active Substance: CYCLOPHOSPHAMIDE
     Route: 048
  26. EPOETIN ALFA [Concomitant]
     Active Substance: ERYTHROPOIETIN
     Indication: Product used for unknown indication
     Route: 065
  27. FERROUS FUMARATE [Concomitant]
     Active Substance: FERROUS FUMARATE
     Indication: Product used for unknown indication
     Dosage: NOT SPECIFIED
     Route: 048
  28. NITROGLYCERIN [Concomitant]
     Active Substance: NITROGLYCERIN
     Indication: Product used for unknown indication
     Dosage: NOT SPECIFIED
     Route: 062
  29. PANTOPRAZOLE SODIUM [Concomitant]
     Active Substance: PANTOPRAZOLE SODIUM
     Indication: Product used for unknown indication
     Dosage: PANTOPRAZOLE SODIUM
     Route: 048
  30. PREDNISONE [Concomitant]
     Active Substance: PREDNISONE
     Indication: Product used for unknown indication
     Route: 048
  31. PREDNISONE [Concomitant]
     Active Substance: PREDNISONE
     Dosage: NOT SPECIFIED
     Route: 048
  32. QUININE [Concomitant]
     Active Substance: QUININE
     Indication: Muscle spasms
     Route: 065
  33. REVLIMID [Concomitant]
     Active Substance: LENALIDOMIDE
     Indication: Product used for unknown indication
     Route: 065
  34. REVLIMID [Concomitant]
     Active Substance: LENALIDOMIDE
     Route: 065
  35. REVLIMID [Concomitant]
     Active Substance: LENALIDOMIDE
     Route: 065
  36. ROSUVASTATIN [Concomitant]
     Active Substance: ROSUVASTATIN
     Indication: Product used for unknown indication
     Dosage: NOT SPECIFIED
     Route: 048
  37. TERAZOSIN HYDROCHLORIDE [Concomitant]
     Active Substance: TERAZOSIN HYDROCHLORIDE
     Indication: Product used for unknown indication
     Route: 048
  38. LINAGLIPTIN [Concomitant]
     Active Substance: LINAGLIPTIN
     Indication: Product used for unknown indication
     Route: 048
  39. AMLODIPINE BESYLATE [Concomitant]
     Active Substance: AMLODIPINE BESYLATE
     Indication: Product used for unknown indication
     Route: 065

REACTIONS (16)
  - Abdominal pain upper [Recovered/Resolved]
  - Cardiac failure [Recovered/Resolved]
  - Constipation [Recovered/Resolved]
  - Dyspnoea [Recovered/Resolved]
  - Haemorrhoids [Recovered/Resolved]
  - Chest discomfort [Recovered/Resolved]
  - COVID-19 [Recovered/Resolved]
  - Cataract [Recovered/Resolved]
  - Vulvovaginal mycotic infection [Recovered/Resolved]
  - Neoplasm skin [Recovered/Resolved]
  - Fall [Recovered/Resolved]
  - Clostridium difficile colitis [Recovered/Resolved]
  - Neuropathy peripheral [Recovered/Resolved]
  - Drug ineffective [Recovered/Resolved]
  - Off label use [Recovered/Resolved]
  - Product use issue [Recovered/Resolved]
